FAERS Safety Report 15656962 (Version 1)
Quarter: 2018Q4

REPORT INFORMATION
  Report Type: Spontaneous
  Country: US (occurrence: US)
  Receive Date: 20181126
  Receipt Date: 20181126
  Transmission Date: 20190205
  Serious: Yes (Disabling)
  Sender: FDA-Public Use
  Company Number: None

PATIENT
  Age: 57 Year
  Sex: Female
  Weight: 58.5 kg

DRUGS (1)
  1. ORAL PROGESTERONE 200 CAPSULE [Suspect]
     Active Substance: PROGESTERONE
     Indication: MENOPAUSAL SYMPTOMS
     Dosage: ?          QUANTITY:1 CAPSULE(S);?
     Route: 048
     Dates: start: 20181012, end: 20181120

REACTIONS (7)
  - Pelvic pain [None]
  - Muscle spasms [None]
  - Heart rate increased [None]
  - Pain [None]
  - Hypersomnia [None]
  - Breast pain [None]
  - Alopecia [None]

NARRATIVE: CASE EVENT DATE: 20181012
